FAERS Safety Report 25878586 (Version 2)
Quarter: 2025Q4

REPORT INFORMATION
  Report Type: Report from Study
  Country: GB (occurrence: GB)
  Receive Date: 20251003
  Receipt Date: 20251015
  Transmission Date: 20260118
  Serious: Yes (Hospitalization, Other)
  Sender: NOVARTIS
  Company Number: GB-002147023-NVSC2025GB152766

PATIENT
  Sex: Female

DRUGS (1)
  1. KISQALI [Suspect]
     Active Substance: RIBOCICLIB SUCCINATE
     Indication: Breast cancer female
     Dosage: 200 MG, QD
     Route: 048

REACTIONS (4)
  - Dizziness [Unknown]
  - Pneumonia [Unknown]
  - Malaise [Unknown]
  - Off label use [Unknown]
